FAERS Safety Report 7122337-8 (Version None)
Quarter: 2010Q4

REPORT INFORMATION
  Report Type: 
  Country: None (occurrence: None)
  Receive Date: 20101124
  Receipt Date: 20101116
  Transmission Date: 20110411
  Serious: Yes (Death)
  Sender: FDA-Public Use
  Company Number: FR-B.I. PHARMACEUTICALS,INC./RIDGEFIELD-2010-FF-00748FF

PATIENT
  Sex: Male
  Weight: 131 kg

DRUGS (3)
  1. PRADAXA [Suspect]
     Indication: HIP ARTHROPLASTY
     Dosage: 220 MG
     Route: 048
     Dates: start: 20100622, end: 20100717
  2. FLUDEX LP [Concomitant]
     Indication: HYPERTENSION
     Dosage: 1.5 MG
     Route: 048
     Dates: start: 20081125
  3. EXFORGE [Concomitant]
     Indication: HYPERTENSION
     Dosage: 5MG/80MG
     Route: 048
     Dates: start: 20100322

REACTIONS (1)
  - MYOCARDIAL INFARCTION [None]
